FAERS Safety Report 4281563-6 (Version None)
Quarter: 2004Q1

REPORT INFORMATION
  Report Type: 
  Country: None (occurrence: None)
  Receive Date: 20040128
  Receipt Date: 20040115
  Transmission Date: 20041129
  Serious: Yes (Other)
  Sender: FDA-Public Use
  Company Number: 12483301

PATIENT
  Sex: Female

DRUGS (9)
  1. CYCLOPHOSPHAMIDE [Suspect]
     Indication: OVARIAN EPITHELIAL CANCER
     Dosage: 6000 MG/M2,
     Dates: start: 19990201
  2. CISPLATIN [Suspect]
     Dates: start: 19950101, end: 19981201
  3. PACLITAXEL [Suspect]
     Dates: start: 19981001, end: 19981201
  4. ETOPOSIDE [Suspect]
     Dosage: 1200 MG/M2,
     Dates: start: 19980201
  5. CARBOPLATIN [Suspect]
     Dosage: 1500 MG/M2,
     Dates: start: 19990201
  6. TREOSULFAN [Suspect]
     Indication: OVARIAN EPITHELIAL CANCER
     Dosage: 47 GRAM,
     Dates: start: 19990101
  7. VINORELBINE TARTRATE [Suspect]
     Dates: start: 19990801, end: 19991201
  8. FLUOROURACIL [Suspect]
     Dates: start: 19990801, end: 19991201
  9. FOLINIC ACID [Suspect]
     Dates: start: 19990801, end: 19991201

REACTIONS (7)
  - CARBOHYDRATE ANTIGEN 125 INCREASED [None]
  - DISEASE PROGRESSION [None]
  - METASTASES TO PERITONEUM [None]
  - OSTEONECROSIS [None]
  - OVARIAN EPITHELIAL CANCER [None]
  - PLEURAL EFFUSION [None]
  - STEM CELL TRANSPLANT [None]
